FAERS Safety Report 5205483-5 (Version None)
Quarter: 2006Q4

REPORT INFORMATION
  Report Type: 
  Country: None (occurrence: None)
  Receive Date: 20061027
  Receipt Date: 20051114
  Transmission Date: 20070319
  Serious: Yes (Other)
  Sender: FDA-Public Use
  Company Number: HQWYE598117NOV05

PATIENT
  Age: 51 Year
  Sex: Female
  Weight: 56.75 kg

DRUGS (3)
  1. PREMARIN [Suspect]
     Indication: MENOPAUSAL SYMPTOMS
     Dosage: SEE IMAGE
     Route: 048
     Dates: start: 20050830, end: 20050101
  2. PREMARIN [Suspect]
     Indication: MENOPAUSAL SYMPTOMS
     Dosage: SEE IMAGE
     Route: 048
     Dates: start: 20050101
  3. THYROID TAB [Concomitant]

REACTIONS (1)
  - INCREASED APPETITE [None]
